FAERS Safety Report 7003298-9 (Version None)
Quarter: 2010Q3

REPORT INFORMATION
  Report Type: 
  Country: None (occurrence: None)
  Receive Date: 20100920
  Receipt Date: 20100907
  Transmission Date: 20110219
  Serious: Yes (Hospitalization)
  Sender: FDA-Public Use
  Company Number: NL-ELI_LILLY_AND_COMPANY-NL201006007112

PATIENT
  Sex: Male

DRUGS (8)
  1. CYMBALTA [Suspect]
     Indication: DIABETIC NEUROPATHY
     Dosage: 30 MG, 2/D
     Dates: start: 20100208
  2. CYMBALTA [Suspect]
     Dosage: 120 MG, UNK
     Dates: end: 20100601
  3. ASASANTIN [Concomitant]
     Indication: CEREBROVASCULAR ACCIDENT
     Dosage: 225 MG, UNK
     Route: 048
  4. LANTUS [Concomitant]
     Indication: DIABETES MELLITUS
     Route: 058
  5. NOVORAPID [Concomitant]
     Indication: DIABETES MELLITUS
     Dosage: UNK, 3/D
     Route: 058
  6. LIPITOR [Concomitant]
     Indication: HYPERCHOLESTEROLAEMIA
     Dosage: 10 MG, UNK
     Route: 048
  7. NEXIUM [Concomitant]
     Dosage: 20 MG, UNK
     Route: 048
  8. OXYCODON [Concomitant]
     Indication: NEURALGIA
     Dosage: 15 MG, AS NEEDED
     Route: 048

REACTIONS (3)
  - HOSPITALISATION [None]
  - NAUSEA [None]
  - VOMITING [None]
